FAERS Safety Report 17545330 (Version 1)
Quarter: 2020Q1

REPORT INFORMATION
  Report Type: Report from Study
  Country: US (occurrence: US)
  Receive Date: 20200316
  Receipt Date: 20200316
  Transmission Date: 20200409
  Serious: Yes (Other)
  Sender: FDA-Public Use
  Company Number: US-CHIESI USA, INC.-US-2020CHI000140

PATIENT

DRUGS (2)
  1. KENGREAL [Suspect]
     Active Substance: CANGRELOR
     Dosage: 4 ?G/KG/MIN, UNK
     Route: 042
     Dates: start: 20190826
  2. KENGREAL [Suspect]
     Active Substance: CANGRELOR
     Indication: PERCUTANEOUS CORONARY INTERVENTION
     Dosage: 30 ?G/KG, UNK
     Route: 042
     Dates: start: 20190826, end: 20190826

REACTIONS (3)
  - Ventricular tachycardia [Unknown]
  - Vascular access site haemorrhage [Recovered/Resolved]
  - Ventricular fibrillation [Unknown]

NARRATIVE: CASE EVENT DATE: 20190826
